FAERS Safety Report 5805604-7 (Version None)
Quarter: 2008Q3

REPORT INFORMATION
  Report Type: 
  Country: None (occurrence: None)
  Receive Date: 20080710
  Receipt Date: 20080626
  Transmission Date: 20090109
  Serious: Yes (Disabling)
  Sender: FDA-Public Use
  Company Number: US-ELI_LILLY_AND_COMPANY-US200704001510

PATIENT
  Sex: Female
  Weight: 59.864 kg

DRUGS (22)
  1. FORTEO [Suspect]
     Indication: OSTEOPOROSIS
     Dosage: 20 UG, DAILY (1/D)
     Dates: start: 20050701, end: 20070301
  2. FORTEO [Suspect]
     Dosage: 20 UG, DAILY (1/D)
     Dates: start: 20070101
  3. FORTEO [Suspect]
     Dosage: 20 UG, DAILY (1/D)
     Dates: end: 20080301
  4. NEURONTIN [Concomitant]
     Indication: PAIN IN EXTREMITY
     Dosage: 600 MG, 3/D
  5. NEURONTIN [Concomitant]
     Dosage: 600 MG, 2/D
  6. PERCOCET [Concomitant]
     Indication: PAIN IN EXTREMITY
     Dosage: 5 UNK, AS NEEDED
  7. PERCOCET [Concomitant]
     Dosage: 5/325, ONE TABLET
  8. POTASSIUM CHLORIDE [Concomitant]
     Dosage: 20 MEQ, 2/D
  9. CALCIUM [Concomitant]
     Dosage: 1000 MG, DAILY (1/D)
  10. XANAX [Concomitant]
     Dosage: 0.5 UNK, 4/D
  11. VITAMIN D [Concomitant]
  12. VITAMIN B-12 [Concomitant]
     Route: 060
  13. VITAMIN B-12 [Concomitant]
  14. FOLIC ACID [Concomitant]
  15. MAGNESIUM [Concomitant]
  16. CYMBALTA [Concomitant]
     Dosage: 30 MG, DAILY (1/D)
  17. GLYCOLAX [Concomitant]
     Dosage: 1 D/F, 2/D
  18. LYRICA [Concomitant]
  19. AMITRIPTYLINE HCL [Concomitant]
  20. KEPPRA [Concomitant]
  21. DILAUDID [Concomitant]
  22. LIDODERM [Concomitant]

REACTIONS (12)
  - CONSTIPATION [None]
  - FOOT OPERATION [None]
  - GAIT DISTURBANCE [None]
  - HYPOTONIA [None]
  - LIMB OPERATION [None]
  - MYALGIA [None]
  - NEUROPATHY PERIPHERAL [None]
  - PAIN IN EXTREMITY [None]
  - PULSE ABNORMAL [None]
  - SEDATION [None]
  - SURGERY [None]
  - TREATMENT FAILURE [None]
